FAERS Safety Report 6673111-8 (Version None)
Quarter: 2010Q2

REPORT INFORMATION
  Report Type: 
  Country: None (occurrence: None)
  Receive Date: 20100406
  Receipt Date: 20100324
  Transmission Date: 20101027
  Serious: Yes (Death, Hospitalization)
  Sender: FDA-Public Use
  Company Number: WAES 1002USA01407

PATIENT
  Age: 46 Year
  Sex: Male

DRUGS (12)
  1. ISENTRESS [Suspect]
     Indication: HIV INFECTION
     Dosage: BID, PO
     Route: 048
     Dates: start: 20091218, end: 20100130
  2. BACTRIM [Concomitant]
  3. DEPAKOTE [Concomitant]
  4. ELAVIL [Concomitant]
  5. EPZICOM [Concomitant]
  6. NORVIR [Concomitant]
  7. PROZAC [Concomitant]
  8. TUSSINEX (BROMHEXINE HYDROCHLORIDE) [Concomitant]
  9. VALTREX [Concomitant]
  10. DARUNAVIR [Concomitant]
  11. KETOCONAZOLE [Concomitant]
  12. SERTRALINE HYDROCHLORIDE [Concomitant]

REACTIONS (16)
  - ALANINE AMINOTRANSFERASE INCREASED [None]
  - BLOOD SODIUM DECREASED [None]
  - BRAIN MASS [None]
  - CARDIAC ARREST [None]
  - CEREBROVASCULAR ACCIDENT [None]
  - COUGH [None]
  - DIARRHOEA [None]
  - DRUG SCREEN POSITIVE [None]
  - HYPERSOMNIA [None]
  - INFECTION [None]
  - LETHARGY [None]
  - MENINGITIS [None]
  - REFUSAL OF TREATMENT BY RELATIVE [None]
  - SINUS TACHYCARDIA [None]
  - STATUS EPILEPTICUS [None]
  - UNRESPONSIVE TO STIMULI [None]
